FAERS Safety Report 4373232-9 (Version None)
Quarter: 2004Q2

REPORT INFORMATION
  Report Type: 
  Country: None (occurrence: None)
  Receive Date: 20040608
  Receipt Date: 20040602
  Transmission Date: 20050107
  Serious: Yes (Hospitalization)
  Sender: FDA-Public Use
  Company Number: US-GLAXOSMITHKLINE-A0513169A

PATIENT
  Age: 69 Year
  Sex: Male

DRUGS (7)
  1. DYAZIDE [Suspect]
     Indication: HYPERTENSION
     Dates: end: 20040101
  2. ROPINIROLE [Concomitant]
     Indication: PARKINSON'S DISEASE
  3. CARBIDOPA AND LEVODOPA [Concomitant]
     Indication: PARKINSON'S DISEASE
  4. VIAGRA [Concomitant]
     Indication: ERECTILE DYSFUNCTION
  5. HYTRIN [Concomitant]
     Indication: POLLAKIURIA
  6. ASPIRIN [Concomitant]
     Indication: PROPHYLAXIS
  7. ATENOLOL [Concomitant]

REACTIONS (1)
  - SYNCOPE [None]
